FAERS Safety Report 9165925 (Version 1)
Quarter: 2013Q1

REPORT INFORMATION
  Report Type: Spontaneous
  Country: US (occurrence: US)
  Receive Date: 20130315
  Receipt Date: 20130315
  Transmission Date: 20140127
  Serious: Yes (Other)
  Sender: FDA-Public Use
  Company Number: US-SANOFI-AVENTIS-2013SA025001

PATIENT
  Age: 73 Year
  Sex: Female
  Weight: 59 kg

DRUGS (6)
  1. MULTAQ [Suspect]
     Indication: ATRIAL FIBRILLATION
     Route: 048
     Dates: start: 201012, end: 20130105
  2. MULTAQ [Suspect]
     Indication: ATRIAL FIBRILLATION
     Route: 048
     Dates: start: 20130106
  3. ASPIRIN [Concomitant]
  4. XARELTO [Concomitant]
  5. WARFARIN [Concomitant]
  6. ATORVASTATIN [Concomitant]

REACTIONS (6)
  - Transient ischaemic attack [Recovered/Resolved]
  - Speech disorder [Recovered/Resolved]
  - Atrial flutter [Unknown]
  - Gingival bleeding [Unknown]
  - Epistaxis [Unknown]
  - Dysgeusia [Unknown]
